FAERS Safety Report 18350484 (Version 3)
Quarter: 2020Q4

REPORT INFORMATION
  Report Type: Report from Study
  Country: CA (occurrence: CA)
  Receive Date: 20201006
  Receipt Date: 20201119
  Transmission Date: 20210114
  Serious: Yes (Hospitalization, Other)
  Sender: FDA-Public Use
  Company Number: CA-JNJFOC-20200951311

PATIENT
  Age: 46 Year
  Sex: Male
  Weight: 68.2 kg

DRUGS (2)
  1. SIMPONI [Suspect]
     Active Substance: GOLIMUMAB
     Indication: ARTHRITIS ENTEROPATHIC
     Route: 042
  2. SIMPONI [Suspect]
     Active Substance: GOLIMUMAB
     Indication: CROHN^S DISEASE

REACTIONS (7)
  - Intestinal resection [Recovered/Resolved]
  - Pain [Unknown]
  - Off label use [Unknown]
  - Product use in unapproved indication [Unknown]
  - Abdominal distension [Unknown]
  - Hypertension [Unknown]
  - Deep vein thrombosis [Unknown]

NARRATIVE: CASE EVENT DATE: 20200902
